FAERS Safety Report 4696633-8 (Version None)
Quarter: 2005Q2

REPORT INFORMATION
  Report Type: 
  Country: None (occurrence: None)
  Receive Date: 20050616
  Receipt Date: 20050415
  Transmission Date: 20051028
  Serious: Yes (Other)
  Sender: FDA-Public Use
  Company Number: BDI-007126

PATIENT
  Age: 49 Year
  Sex: Female

DRUGS (3)
  1. MULTIHANCE [Suspect]
     Indication: GAIT DISTURBANCE
     Dosage: 24 ML ONCE IV
     Route: 042
     Dates: start: 20050415, end: 20050415
  2. MULTIHANCE [Suspect]
     Indication: NUCLEAR MAGNETIC RESONANCE IMAGING
     Dosage: 24 ML ONCE IV
     Route: 042
     Dates: start: 20050415, end: 20050415
  3. LIPITOR [Concomitant]

REACTIONS (1)
  - ANAPHYLACTOID REACTION [None]
